FAERS Safety Report 11004542 (Version 2)
Quarter: 2015Q3

REPORT INFORMATION
  Report Type: Spontaneous
  Country: US (occurrence: US)
  Receive Date: 20150409
  Receipt Date: 20150909
  Transmission Date: 20151125
  Serious: Yes (Death, Hospitalization, Other)
  Sender: FDA-Public Use
  Company Number: US-009507513-1504USA003841

PATIENT
  Sex: Male
  Weight: 113.38 kg

DRUGS (2)
  1. JANUMET [Suspect]
     Active Substance: METFORMIN HYDROCHLORIDE\SITAGLIPTIN PHOSPHATE
     Dosage: 100/1000 MG, BID
     Route: 048
     Dates: start: 20080421, end: 20130304
  2. JANUMET [Suspect]
     Active Substance: METFORMIN HYDROCHLORIDE\SITAGLIPTIN PHOSPHATE
     Indication: TYPE 2 DIABETES MELLITUS
     Dosage: 50/500 MG, QD
     Route: 048
     Dates: start: 20080421, end: 20130304

REACTIONS (8)
  - Renal failure [Unknown]
  - Functional gastrointestinal disorder [Unknown]
  - Nephropathy [Unknown]
  - Pancreatic carcinoma [Unknown]
  - Neuropathy peripheral [Unknown]
  - Death [Fatal]
  - Pancreaticoduodenectomy [Unknown]
  - Biliary neoplasm [Unknown]

NARRATIVE: CASE EVENT DATE: 2014
